FAERS Safety Report 4788458-X (Version None)
Quarter: 2005Q4

REPORT INFORMATION
  Report Type: 
  Country: None (occurrence: None)
  Receive Date: 20051005
  Receipt Date: 20051005
  Transmission Date: 20060501
  Serious: Yes (Hospitalization)
  Sender: FDA-Public Use
  Company Number: None

PATIENT
  Age: 48 Year
  Sex: Male

DRUGS (7)
  1. RELAFEN [Suspect]
     Indication: SUICIDE ATTEMPT
     Dosage: 500MG; #60 PILLS ORAL
     Route: 048
  2. METFORMIN [Concomitant]
  3. RISPERIDONE [Concomitant]
  4. QUETIAPINE FUMARATE [Concomitant]
  5. BENZTROPINE [Concomitant]
  6. HALDOL [Concomitant]
  7. SERTRALINE HCL [Concomitant]

REACTIONS (4)
  - BLOOD CREATININE INCREASED [None]
  - NAUSEA [None]
  - OVERDOSE [None]
  - VOMITING [None]
